FAERS Safety Report 7452949-3 (Version None)
Quarter: 2011Q2

REPORT INFORMATION
  Report Type: 
  Country: None (occurrence: None)
  Receive Date: 20110502
  Receipt Date: 20110428
  Transmission Date: 20111010
  Serious: Yes (Other)
  Sender: FDA-Public Use
  Company Number: US-PFIZER INC-2009269266

PATIENT
  Sex: Male

DRUGS (3)
  1. ALPRAZOLAM [Suspect]
     Indication: GENERALISED ANXIETY DISORDER
     Dosage: 1 MG, 3X/DAY
     Dates: start: 20080101
  2. ALPRAZOLAM [Suspect]
     Dosage: 2 MG, 3X/DAY
  3. ALPRAZOLAM [Suspect]
     Dosage: 2 MG, 1X/DAY

REACTIONS (5)
  - DRUG EFFECT DECREASED [None]
  - ANXIETY [None]
  - DYSPNOEA [None]
  - DRUG INEFFECTIVE [None]
  - NERVOUSNESS [None]
